FAERS Safety Report 5906839-5 (Version None)
Quarter: 2008Q3

REPORT INFORMATION
  Report Type: 
  Country: None (occurrence: None)
  Receive Date: 20080929
  Receipt Date: 20080924
  Transmission Date: 20090109
  Serious: Yes (Hospitalization)
  Sender: FDA-Public Use
  Company Number: 2008AL010157

PATIENT
  Age: 67 Year
  Sex: Female
  Weight: 99.7913 kg

DRUGS (2)
  1. DIGOXIN [Suspect]
     Indication: ARRHYTHMIA
     Dosage: 0.125MG, DAILY PO
     Route: 048
     Dates: start: 20080326, end: 20080418
  2. CARTIA XT [Concomitant]

REACTIONS (7)
  - BLOOD PRESSURE INCREASED [None]
  - ERYTHEMA [None]
  - PALPITATIONS [None]
  - PRURITUS [None]
  - SKIN IRRITATION [None]
  - SWELLING [None]
  - URTICARIA [None]
